FAERS Safety Report 5642567-1 (Version None)
Quarter: 2008Q1

REPORT INFORMATION
  Report Type: 
  Country: None (occurrence: None)
  Receive Date: 20080228
  Receipt Date: 20080222
  Transmission Date: 20080703
  Serious: Yes (Other)
  Sender: FDA-Public Use
  Company Number: CA-ALLERGAN-0802234US

PATIENT
  Sex: Female

DRUGS (1)
  1. BOTOX [Suspect]
     Indication: CEREBRAL PALSY
     Dosage: 100 UNITS, UNK
     Route: 030

REACTIONS (2)
  - PHARYNGITIS [None]
  - UPPER RESPIRATORY TRACT INFECTION [None]
